FAERS Safety Report 11760329 (Version 1)
Quarter: 2015Q4

REPORT INFORMATION
  Report Type: Spontaneous
  Country: CA (occurrence: CA)
  Receive Date: 20151120
  Receipt Date: 20151120
  Transmission Date: 20160304
  Serious: Yes (Hospitalization, Other)
  Sender: FDA-Public Use
  Company Number: CA-TEVA-611070ACC

PATIENT
  Sex: Male
  Weight: 73 kg

DRUGS (15)
  1. FRAGMIN [Suspect]
     Active Substance: DALTEPARIN SODIUM
     Indication: DEEP VEIN THROMBOSIS POSTOPERATIVE
     Route: 058
  2. ROSUVASTATIN [Concomitant]
     Active Substance: ROSUVASTATIN
  3. FRAGMIN [Suspect]
     Active Substance: DALTEPARIN SODIUM
     Dosage: 5000 IU (INTERNATIONAL UNIT) DAILY;
     Route: 058
  4. HYDROMORPHONE [Concomitant]
     Active Substance: HYDROMORPHONE
  5. CLOPIDOGREL [Suspect]
     Active Substance: CLOPIDOGREL BISULFATE
     Indication: STENT PLACEMENT
     Dosage: 75 MILLIGRAM DAILY;
     Route: 048
  6. BUPIVACAINE [Concomitant]
     Active Substance: BUPIVACAINE
  7. CEFAZOLIN FOR INJECTION [Concomitant]
     Route: 042
  8. GLEEVEC [Concomitant]
     Active Substance: IMATINIB MESYLATE
  9. DIPHENHYDRAMINE. [Concomitant]
     Active Substance: DIPHENHYDRAMINE
  10. FENTANYL. [Concomitant]
     Active Substance: FENTANYL
  11. ACETYLSALICYLIC ACID [Suspect]
     Active Substance: ASPIRIN
     Indication: PRODUCT USED FOR UNKNOWN INDICATION
     Route: 048
  12. DIMENHYDRINATE. [Concomitant]
     Active Substance: DIMENHYDRINATE
  13. XALACOM [Concomitant]
     Active Substance: LATANOPROST\TIMOLOL MALEATE
     Route: 047
  14. BISOPROLOL [Concomitant]
     Active Substance: BISOPROLOL
  15. ONDANSETRON [Concomitant]
     Active Substance: ONDANSETRON

REACTIONS (3)
  - Haemorrhage [Unknown]
  - Haemoglobin decreased [Unknown]
  - Blood pressure decreased [Unknown]
